FAERS Safety Report 24416162 (Version 1)
Quarter: 2024Q4

REPORT INFORMATION
  Report Type: Spontaneous
  Country: US (occurrence: US)
  Receive Date: 20241009
  Receipt Date: 20241009
  Transmission Date: 20250114
  Serious: No
  Sender: CELLTRION
  Company Number: US-CELLTRION INC.-2024US009836

PATIENT

DRUGS (1)
  1. INFLECTRA [Suspect]
     Active Substance: INFLIXIMAB-DYYB
     Indication: Product used for unknown indication
     Dosage: UNK
     Route: 042
     Dates: start: 20240330

REACTIONS (1)
  - Lymphadenopathy [Unknown]
